FAERS Safety Report 17982328 (Version 2)
Quarter: 2020Q4

REPORT INFORMATION
  Report Type: Spontaneous
  Country: US (occurrence: US)
  Receive Date: 20200706
  Receipt Date: 20201230
  Transmission Date: 20210113
  Serious: Yes (Other)
  Sender: FDA-Public Use
  Company Number: US-ASTRAZENECA-2020SE83378

PATIENT
  Age: 16570 Day
  Sex: Female

DRUGS (64)
  1. PRILOSEC [Suspect]
     Active Substance: OMEPRAZOLE MAGNESIUM
     Indication: GASTROOESOPHAGEAL REFLUX DISEASE
     Route: 048
  2. MISOPROSTOL. [Concomitant]
     Active Substance: MISOPROSTOL
  3. RANITIDINE. [Concomitant]
     Active Substance: RANITIDINE
  4. CYMBALTA [Concomitant]
     Active Substance: DULOXETINE HYDROCHLORIDE
  5. TOPAMAX [Concomitant]
     Active Substance: TOPIRAMATE
  6. DIAZEPAM. [Concomitant]
     Active Substance: DIAZEPAM
  7. DENAVIR [Concomitant]
     Active Substance: PENCICLOVIR
  8. GAVILYTE [Concomitant]
  9. AMOX-CLAV [Concomitant]
     Active Substance: AMOXICILLIN\CLAVULANATE POTASSIUM
  10. NAPROXEN. [Concomitant]
     Active Substance: NAPROXEN
  11. LEVSIN [Concomitant]
     Active Substance: HYOSCYAMINE SULFATE
  12. PRILOSEC [Suspect]
     Active Substance: OMEPRAZOLE MAGNESIUM
     Indication: GASTROOESOPHAGEAL REFLUX DISEASE
     Dosage: GENERIC40.0MG UNKNOWN
     Route: 065
     Dates: start: 2017
  13. LISINOPRIL. [Concomitant]
     Active Substance: LISINOPRIL
  14. ERRIN [Concomitant]
     Active Substance: NORETHINDRONE
  15. BIAXIN [Concomitant]
     Active Substance: CLARITHROMYCIN
  16. ETODOLAC. [Concomitant]
     Active Substance: ETODOLAC
  17. OXAPROZIN. [Concomitant]
     Active Substance: OXAPROZIN
  18. ACETAMINOPHEN AND CODEINE [Concomitant]
     Active Substance: ACETAMINOPHEN\CODEINE PHOSPHATE
  19. LORAZEPAM. [Concomitant]
     Active Substance: LORAZEPAM
  20. BENTYL [Concomitant]
     Active Substance: DICYCLOMINE HYDROCHLORIDE
  21. DEMEROL [Concomitant]
     Active Substance: MEPERIDINE HYDROCHLORIDE
  22. PRILOSEC [Suspect]
     Active Substance: OMEPRAZOLE MAGNESIUM
     Indication: GASTROOESOPHAGEAL REFLUX DISEASE
     Dosage: GENERIC40.0MG UNKNOWN
     Route: 065
     Dates: start: 2015
  23. HYDROCODONE BITARTRATE AND ACETAMINOPHEN [Concomitant]
     Active Substance: ACETAMINOPHEN\HYDROCODONE BITARTRATE
  24. METHOCARBAMOL. [Concomitant]
     Active Substance: METHOCARBAMOL
  25. DICLOFENAC SODIUM. [Concomitant]
     Active Substance: DICLOFENAC SODIUM
  26. SMP-TMP [Concomitant]
  27. PHENTERMINE. [Concomitant]
     Active Substance: PHENTERMINE
  28. LOMOTIL [Concomitant]
     Active Substance: ATROPINE SULFATE\DIPHENOXYLATE HYDROCHLORIDE
  29. NEXIUM [Suspect]
     Active Substance: ESOMEPRAZOLE MAGNESIUM
     Indication: GASTROOESOPHAGEAL REFLUX DISEASE
     Dosage: 40.0MG UNKNOWN
     Route: 048
     Dates: start: 2007, end: 2013
  30. PANTOPRAZOLE [Suspect]
     Active Substance: PANTOPRAZOLE
     Indication: GASTROOESOPHAGEAL REFLUX DISEASE
     Dosage: GENERIC40.0MG UNKNOWN
     Route: 065
     Dates: start: 2015, end: 2017
  31. DICLOFENAC [Concomitant]
     Active Substance: DICLOFENAC
  32. PROMETHAZINE [Concomitant]
     Active Substance: PROMETHAZINE HYDROCHLORIDE
  33. LYRICA [Concomitant]
     Active Substance: PREGABALIN
  34. CEFUROXIME AXETIL. [Concomitant]
     Active Substance: CEFUROXIME AXETIL
  35. LODRANE D [Concomitant]
     Active Substance: BROMPHENIRAMINE MALEATE\PSEUDOEPHEDRINE HYDROCHLORIDE
  36. PRENAPLUS [Concomitant]
  37. CARAFATE [Concomitant]
     Active Substance: SUCRALFATE
  38. FLUCONAZOLE. [Concomitant]
     Active Substance: FLUCONAZOLE
  39. PENTAZOCINE-NALOXONE [Concomitant]
     Active Substance: NALOXONE\PENTAZOCINE
  40. QUESTRAN [Concomitant]
     Active Substance: CHOLESTYRAMINE
  41. ROSUVASTATIN. [Concomitant]
     Active Substance: ROSUVASTATIN
  42. OXYCODONE??ACETAMINOPHEN [Concomitant]
  43. KETOCONAZOLE. [Concomitant]
     Active Substance: KETOCONAZOLE
  44. AMOXICILLIN. [Concomitant]
     Active Substance: AMOXICILLIN
  45. MIRAPEX [Concomitant]
     Active Substance: PRAMIPEXOLE DIHYDROCHLORIDE
  46. AZITHROMYCIN ANHYDROUS. [Concomitant]
     Active Substance: AZITHROMYCIN ANHYDROUS
  47. EFFEXOR [Concomitant]
     Active Substance: VENLAFAXINE HYDROCHLORIDE
  48. BUSPIRONE HYDROCHLORIDE. [Concomitant]
     Active Substance: BUSPIRONE HYDROCHLORIDE
  49. OFLOXACIN. [Concomitant]
     Active Substance: OFLOXACIN
  50. ZOVIRAX [Concomitant]
     Active Substance: ACYCLOVIR
  51. IBUPROFEN. [Concomitant]
     Active Substance: IBUPROFEN
     Indication: PAIN
  52. OXYCODONE HYDROCHLORIDE. [Concomitant]
     Active Substance: OXYCODONE HYDROCHLORIDE
  53. TIZANIDINE. [Concomitant]
     Active Substance: TIZANIDINE
  54. BENZONATATE. [Concomitant]
     Active Substance: BENZONATATE
  55. GABAPENTIN. [Concomitant]
     Active Substance: GABAPENTIN
  56. ESCITALOPRAM [Concomitant]
     Active Substance: ESCITALOPRAM OXALATE
  57. IMITREX [Concomitant]
     Active Substance: SUMATRIPTAN SUCCINATE
  58. PREDNISONE. [Concomitant]
     Active Substance: PREDNISONE
  59. ZOFRAN [Concomitant]
     Active Substance: ONDANSETRON HYDROCHLORIDE
  60. SAVELLA [Concomitant]
     Active Substance: MILNACIPRAN HYDROCHLORIDE
  61. ROSUVASTATIN CALCIUM. [Concomitant]
     Active Substance: ROSUVASTATIN CALCIUM
  62. DASETTA 7/7/7 [Concomitant]
     Active Substance: ETHINYL ESTRADIOL\NORETHINDRONE
  63. SUCROSE [Concomitant]
     Active Substance: SUCROSE
  64. CODEINE SULFATE. [Concomitant]
     Active Substance: CODEINE SULFATE

REACTIONS (2)
  - Chronic kidney disease [Not Recovered/Not Resolved]
  - Acute kidney injury [Not Recovered/Not Resolved]

NARRATIVE: CASE EVENT DATE: 20180615
